FAERS Safety Report 6906911-7 (Version None)
Quarter: 2010Q3

REPORT INFORMATION
  Report Type: 
  Country: None (occurrence: None)
  Receive Date: 20100804
  Receipt Date: 20100728
  Transmission Date: 20110219
  Serious: Yes (Hospitalization, Other)
  Sender: FDA-Public Use
  Company Number: US-ELI_LILLY_AND_COMPANY-US201006004388

PATIENT
  Sex: Male

DRUGS (10)
  1. HUMALOG [Suspect]
     Indication: TYPE 1 DIABETES MELLITUS
     Dosage: UNK, AS NEEDED
     Route: 058
  2. HUMALOG [Suspect]
     Dosage: UNK, OTHER
     Route: 058
     Dates: start: 20081215
  3. HUMULIN R [Suspect]
  4. HUMULIN 70/30 [Suspect]
     Indication: TYPE 1 DIABETES MELLITUS
     Dosage: 80 U, DAILY (1/D)
     Dates: start: 19950615
  5. GLUCAGON [Suspect]
  6. CARVEDILOL [Concomitant]
     Indication: CARDIAC DISORDER
  7. AGGRENOX [Concomitant]
     Indication: CARDIAC DISORDER
  8. ASPIRIN [Concomitant]
     Indication: CARDIAC DISORDER
  9. PRIMIDONE [Concomitant]
  10. MIRTAZAPINE [Concomitant]
     Indication: TREMOR

REACTIONS (14)
  - BLOOD GLUCOSE DECREASED [None]
  - CARDIAC DISORDER [None]
  - CATARACT [None]
  - CEREBROVASCULAR ACCIDENT [None]
  - CONVULSION [None]
  - CORONARY ARTERY OCCLUSION [None]
  - GAIT DISTURBANCE [None]
  - GRAND MAL CONVULSION [None]
  - INCORRECT DOSE ADMINISTERED [None]
  - LOSS OF CONSCIOUSNESS [None]
  - MYOCARDIAL INFARCTION [None]
  - PNEUMONIA [None]
  - TREMOR [None]
  - VISUAL ACUITY REDUCED [None]
